FAERS Safety Report 18717220 (Version 1)
Quarter: 2021Q1

REPORT INFORMATION
  Report Type: Spontaneous
  Country: CN (occurrence: CN)
  Receive Date: 20210108
  Receipt Date: 20210108
  Transmission Date: 20210419
  Serious: Yes (Hospitalization, Other)
  Sender: FDA-Public Use
  Company Number: CN-009507513-2101CHN001246

PATIENT
  Age: 69 Year
  Sex: Male
  Weight: 52 kg

DRUGS (23)
  1. CISPLATIN. [Suspect]
     Active Substance: CISPLATIN
     Dosage: 30 MG ON DAY 1?2 AND 40 MG ON DAY 3
     Dates: start: 20200211
  2. CISPLATIN. [Suspect]
     Active Substance: CISPLATIN
     Dosage: 30 MG ON DAY 1?2 AND 40 MG ON DAY 3
     Dates: start: 20200304
  3. KEYTRUDA [Suspect]
     Active Substance: PEMBROLIZUMAB
     Dosage: 200 MILLIGRAM
     Dates: start: 20200424, end: 20200424
  4. DOCETAXEL. [Suspect]
     Active Substance: DOCETAXEL
     Dosage: 100 MILLIGRAM
     Dates: start: 20200211, end: 20200211
  5. DOCETAXEL. [Suspect]
     Active Substance: DOCETAXEL
     Dosage: 120 MILLIGRAM
     Dates: start: 20200716, end: 20200716
  6. CISPLATIN. [Suspect]
     Active Substance: CISPLATIN
     Indication: LUNG ADENOCARCINOMA
     Dosage: 40 MG/DAY FOR 3 DAYS
     Dates: start: 20200110
  7. CISPLATIN. [Suspect]
     Active Substance: CISPLATIN
     Dosage: 30 MG ON DAY 1?2 AND 40 MG ON DAY 3
     Dates: start: 20200326
  8. KEYTRUDA [Suspect]
     Active Substance: PEMBROLIZUMAB
     Dosage: 200 MILLIGRAM
     Dates: start: 20200618, end: 20200618
  9. CISPLATIN. [Suspect]
     Active Substance: CISPLATIN
     Dosage: 30 MG ON DAY 1?2 AND 40 MG ON DAY 3
     Dates: start: 20200424
  10. KEYTRUDA [Suspect]
     Active Substance: PEMBROLIZUMAB
     Indication: LUNG ADENOCARCINOMA
     Dosage: 200 MILLIGRAM, QD
     Route: 041
     Dates: start: 20200110, end: 20200110
  11. KEYTRUDA [Suspect]
     Active Substance: PEMBROLIZUMAB
     Dosage: 200 MILLIGRAM
     Dates: start: 20200326, end: 20200326
  12. DOCETAXEL. [Suspect]
     Active Substance: DOCETAXEL
     Dosage: 100 MILLIGRAM
     Dates: start: 20200326, end: 20200326
  13. DOCETAXEL. [Suspect]
     Active Substance: DOCETAXEL
     Dosage: 100 MILLIGRAM
     Dates: start: 20200424, end: 20200424
  14. KEYTRUDA [Suspect]
     Active Substance: PEMBROLIZUMAB
     Dosage: 200 MILLIGRAM
     Dates: start: 20200211, end: 20200211
  15. KEYTRUDA [Suspect]
     Active Substance: PEMBROLIZUMAB
     Dosage: 200 MILLIGRAM
     Dates: start: 20200520, end: 20200520
  16. DOCETAXEL. [Suspect]
     Active Substance: DOCETAXEL
     Indication: LUNG ADENOCARCINOMA
     Dosage: 120 MILLIGRAM
     Dates: start: 20200110, end: 20200110
  17. DOCETAXEL. [Suspect]
     Active Substance: DOCETAXEL
     Dosage: 120 MILLIGRAM
     Dates: start: 20200618, end: 20200618
  18. KEYTRUDA [Suspect]
     Active Substance: PEMBROLIZUMAB
     Dosage: 200 MILLIGRAM
     Dates: start: 20200716, end: 20200716
  19. DOCETAXEL. [Suspect]
     Active Substance: DOCETAXEL
     Dosage: 100 MILLIGRAM
     Dates: start: 20200520, end: 20200520
  20. CISPLATIN. [Suspect]
     Active Substance: CISPLATIN
     Dosage: 30 MG ON DAY 1?2 AND 40 MG ON DAY 3
     Dates: start: 20200520
  21. KEYTRUDA [Suspect]
     Active Substance: PEMBROLIZUMAB
     Dosage: 200 MILLIGRAM
     Dates: start: 20200304, end: 20200304
  22. KEYTRUDA [Suspect]
     Active Substance: PEMBROLIZUMAB
     Dosage: 200 MILLIGRAM, QD
     Dates: start: 20200813, end: 20200813
  23. DOCETAXEL. [Suspect]
     Active Substance: DOCETAXEL
     Dosage: 100 MILLIGRAM
     Dates: start: 20200304, end: 20200304

REACTIONS (6)
  - Drug intolerance [Unknown]
  - Immune-mediated myocarditis [Recovering/Resolving]
  - Neuropathy peripheral [Unknown]
  - Myelosuppression [Unknown]
  - Renal failure [Unknown]
  - Inappropriate schedule of product administration [Unknown]

NARRATIVE: CASE EVENT DATE: 2020
